FAERS Safety Report 7820492-5 (Version None)
Quarter: 2011Q4

REPORT INFORMATION
  Report Type: 
  Country: None (occurrence: None)
  Receive Date: 20111018
  Receipt Date: 20111005
  Transmission Date: 20120403
  Serious: Yes (Hospitalization)
  Sender: FDA-Public Use
  Company Number: US-BAYER-2011-048719

PATIENT
  Age: 28 Year
  Sex: Female
  Weight: 82.54 kg

DRUGS (5)
  1. MIRTAZAPINE [Concomitant]
     Dosage: 22.5 MG, HS
     Route: 048
  2. ALPRAZOLAM [Concomitant]
     Dosage: 0.5 MG, TID
     Route: 048
  3. YAZ [Suspect]
     Indication: CONTRACEPTION
     Dosage: UNK
     Dates: start: 20080101, end: 20080101
  4. METFORMIN HYDROCHLORIDE [Concomitant]
     Dosage: 500 MG, PRN
     Route: 048
  5. ZANTAC [Concomitant]

REACTIONS (4)
  - CHOLELITHIASIS [None]
  - PAIN [None]
  - CHOLECYSTITIS CHRONIC [None]
  - INJURY [None]
